FAERS Safety Report 24981306 (Version 1)
Quarter: 2025Q1

REPORT INFORMATION
  Report Type: Spontaneous
  Country: US (occurrence: None)
  Receive Date: 20250214
  Receipt Date: 20250214
  Transmission Date: 20250408
  Serious: Yes (Hospitalization)
  Sender: FDA-CTU
  Company Number: None

PATIENT
  Age: 37 Year
  Sex: Female
  Weight: 112.5 kg

DRUGS (3)
  1. MIFEPREX [Suspect]
     Active Substance: MIFEPRISTONE
  2. LITHIUM [Concomitant]
     Active Substance: LITHIUM
  3. GEODON [Concomitant]
     Active Substance: ZIPRASIDONE HYDROCHLORIDE\ZIPRASIDONE MESYLATE

REACTIONS (5)
  - Depression [None]
  - Suicidal ideation [None]
  - Infertility female [None]
  - Anembryonic gestation [None]
  - Hypomenorrhoea [None]

NARRATIVE: CASE EVENT DATE: 20220927
